FAERS Safety Report 9356381 (Version 1)
Quarter: 2013Q2

REPORT INFORMATION
  Report Type: Spontaneous
  Country: FR (occurrence: FR)
  Receive Date: 20130619
  Receipt Date: 20130619
  Transmission Date: 20140414
  Serious: Yes (Hospitalization)
  Sender: FDA-Public Use
  Company Number: FR-TEVA-412067ISR

PATIENT
  Age: 25 Year
  Sex: Male

DRUGS (2)
  1. SULFAMETHOXAZOLE W/TRIMETHOPRIM [Suspect]
     Indication: OSTEITIS
     Dosage: SULFAMETHOXAZOLE 1600MG/TRIMETHOPRIM 320MG
     Route: 065
  2. SULFAMETHOXAZOLE W/TRIMETHOPRIM [Suspect]
     Indication: STAPHYLOCOCCAL INFECTION
     Dosage: SULFAMETHOXAZOLE 1600MG/TRIMETHOPRIM 320MG
     Route: 065

REACTIONS (1)
  - Histiocytosis haematophagic [Recovered/Resolved]
